FAERS Safety Report 15478339 (Version 3)
Quarter: 2019Q3

REPORT INFORMATION
  Report Type: Spontaneous
  Country: US (occurrence: US)
  Receive Date: 20181009
  Receipt Date: 20190910
  Transmission Date: 20191004
  Serious: No
  Sender: FDA-Public Use
  Company Number: US-SA-2018SA114029

PATIENT
  Sex: Female

DRUGS (13)
  1. PRESERVISION AREDS [Concomitant]
     Active Substance: MINERALS\VITAMINS
  2. PROTOPIC [Concomitant]
     Active Substance: TACROLIMUS
  3. DICLOFENAC SODIUM. [Concomitant]
     Active Substance: DICLOFENAC SODIUM
  4. DUPIXENT [Suspect]
     Active Substance: DUPILUMAB
     Indication: DERMATITIS ATOPIC
     Dosage: 300 MG, QOW
     Route: 058
     Dates: start: 20170701
  5. PREMARIN [Concomitant]
     Active Substance: ESTROGENS, CONJUGATED
  6. TYLENOL [Concomitant]
     Active Substance: ACETAMINOPHEN
  7. AMLODIPINE BESYLATE. [Concomitant]
     Active Substance: AMLODIPINE BESYLATE
  8. VALSARTAN. [Concomitant]
     Active Substance: VALSARTAN
  9. ASPIRIN [ACETYLSALICYLIC ACID] [Concomitant]
     Active Substance: ASPIRIN
  10. TOLTERODINE TARTRATE. [Concomitant]
     Active Substance: TOLTERODINE TARTRATE
  11. MYRBETRIQ [Concomitant]
     Active Substance: MIRABEGRON
  12. ATORVASTATIN CALCIUM. [Concomitant]
     Active Substance: ATORVASTATIN CALCIUM
  13. PANTOPRAZOLE SODIUM. [Concomitant]
     Active Substance: PANTOPRAZOLE SODIUM

REACTIONS (9)
  - Injection site haemorrhage [Recovered/Resolved]
  - Wrong technique in device usage process [Unknown]
  - Dermatitis [Unknown]
  - Erythema [Unknown]
  - Peripheral swelling [Recovered/Resolved]
  - Joint swelling [Recovered/Resolved]
  - Product dose omission [Unknown]
  - Pruritus [Unknown]
  - Skin irritation [Unknown]
